FAERS Safety Report 9109428 (Version 2)
Quarter: 2013Q1

REPORT INFORMATION
  Report Type: Spontaneous
  Country: FR (occurrence: FR)
  Receive Date: 20130222
  Receipt Date: 20130315
  Transmission Date: 20140127
  Serious: Yes (Death, Hospitalization)
  Sender: FDA-Public Use
  Company Number: FR-BAYER-2013-020112

PATIENT
  Age: 45 Year
  Sex: Female

DRUGS (5)
  1. NEXAVAR [Suspect]
     Indication: METASTATIC GASTRIC CANCER
     Dosage: DAILY DOSE 800 MG
     Route: 048
     Dates: start: 20121122, end: 20121206
  2. NEXAVAR [Suspect]
     Indication: METASTATIC GASTRIC CANCER
     Dosage: DAILY DOSE 800 MG
     Route: 048
     Dates: start: 20121206, end: 20121207
  3. ZALDIAR [Concomitant]
     Dosage: 2 DF, PRN
  4. MOTILIUM [Concomitant]
     Dosage: 3 DF, UNK
     Route: 048
  5. INEXIUM [Concomitant]

REACTIONS (2)
  - Encephalopathy [Fatal]
  - Off label use [None]
